FAERS Safety Report 6187926-6 (Version None)
Quarter: 2009Q2

REPORT INFORMATION
  Report Type: 
  Country: None (occurrence: None)
  Receive Date: 20090511
  Receipt Date: 20090511
  Transmission Date: 20091009
  Serious: No
  Sender: FDA-Public Use
  Company Number: None

PATIENT
  Sex: Female
  Weight: 76.2043 kg

DRUGS (1)
  1. ERYTHROMYCIN [Suspect]
     Indication: BLEPHARITIS
     Dosage: APPLY TO RIGHT EYELID MARGIN Q4H WHILE AWAKE OPHTHALMIC
     Route: 047
     Dates: start: 20090430, end: 20090505

REACTIONS (4)
  - BLOOD PRESSURE INCREASED [None]
  - OEDEMA PERIPHERAL [None]
  - PITTING OEDEMA [None]
  - WEIGHT DECREASED [None]
